FAERS Safety Report 10213225 (Version 2)
Quarter: 2014Q2

REPORT INFORMATION
  Report Type: Spontaneous
  Country: BE (occurrence: BE)
  Receive Date: 20140603
  Receipt Date: 20140626
  Transmission Date: 20141212
  Serious: Yes (Hospitalization, Other)
  Sender: FDA-Public Use
  Company Number: BE-BEH-2014042849

PATIENT
  Age: 35 Year
  Sex: Male

DRUGS (1)
  1. HIZENTRA [Suspect]
     Indication: PRODUCT USED FOR UNKNOWN INDICATION
     Route: 058
     Dates: start: 20140409

REACTIONS (1)
  - Hodgkin^s disease [Unknown]
